FAERS Safety Report 7562342-0 (Version None)
Quarter: 2011Q2

REPORT INFORMATION
  Report Type: 
  Country: None (occurrence: None)
  Receive Date: 20110620
  Receipt Date: 20110620
  Transmission Date: 20111010
  Serious: Yes (Other)
  Sender: FDA-Public Use
  Company Number: None

PATIENT
  Age: 40 Year
  Sex: Female
  Weight: 62.5964 kg

DRUGS (1)
  1. VENLAFAXINE HCL EXTENDED-RELEASE [Suspect]
     Indication: DEPRESSION
     Dosage: 75 MG DAILY ORAL (PO)
     Route: 048
     Dates: start: 20080101

REACTIONS (3)
  - DRUG INEFFECTIVE [None]
  - ANGER [None]
  - EMOTIONAL DISORDER [None]
